FAERS Safety Report 6597148-2 (Version None)
Quarter: 2010Q1

REPORT INFORMATION
  Report Type: 
  Country: None (occurrence: None)
  Receive Date: 20100223
  Receipt Date: 20100201
  Transmission Date: 20100710
  Serious: Yes (Other)
  Sender: FDA-Public Use
  Company Number: US-JNJFOC-20100200676

PATIENT
  Age: 30 Year
  Sex: Male
  Weight: 77.11 kg

DRUGS (4)
  1. EXTRA STRENGTH TYLENOL [Suspect]
     Indication: INFLUENZA
     Dosage: 1000 MG, ONCE TO TWICE DAILY FOR YEARS
     Route: 048
  2. EXTRA STRENGTH TYLENOL [Suspect]
     Indication: HEADACHE
     Dosage: 1000 MG, ONCE TO TWICE DAILY FOR YEARS
     Route: 048
  3. EXTRA STRENGTH TYLENOL [Suspect]
     Indication: PAIN
     Dosage: 1000 MG, ONCE TO TWICE DAILY FOR YEARS
     Route: 048
  4. CLARITIN [Concomitant]
     Indication: MULTIPLE ALLERGIES

REACTIONS (4)
  - DIARRHOEA [None]
  - MALAISE [None]
  - PRODUCT QUALITY ISSUE [None]
  - WEIGHT DECREASED [None]
